FAERS Safety Report 21023412 (Version 1)
Quarter: 2022Q2

REPORT INFORMATION
  Report Type: Spontaneous
  Country: US (occurrence: None)
  Receive Date: 20220629
  Receipt Date: 20220629
  Transmission Date: 20220720
  Serious: Yes (Hospitalization)
  Sender: FDA-Public Use
  Company Number: None

PATIENT
  Age: 62 Year
  Sex: Male

DRUGS (2)
  1. PEMBROLIZUMAB [Suspect]
     Active Substance: PEMBROLIZUMAB
     Indication: Lung adenocarcinoma
     Dosage: OTHER FREQUENCY : OTHER;?
     Route: 042
     Dates: start: 20190625, end: 20191216
  2. PEMETREXED [Suspect]
     Active Substance: PEMETREXED
     Indication: Lung adenocarcinoma
     Dosage: OTHER FREQUENCY : OTHER;?
     Route: 042
     Dates: start: 20190625, end: 20191216

REACTIONS (1)
  - Immune-mediated lung disease [None]

NARRATIVE: CASE EVENT DATE: 20191202
